FAERS Safety Report 21679276 (Version 1)
Quarter: 2022Q4

REPORT INFORMATION
  Report Type: Spontaneous
  Country: BR (occurrence: BR)
  Receive Date: 20221205
  Receipt Date: 20221205
  Transmission Date: 20230113
  Serious: Yes (Death, Other)
  Sender: FDA-Public Use
  Company Number: BR-drreddys-LIT/BRA/22/0157826

PATIENT
  Age: 86 Year
  Sex: Male

DRUGS (9)
  1. BORTEZOMIB [Suspect]
     Active Substance: BORTEZOMIB
     Indication: Plasma cell leukaemia
  2. LENALIDOMIDE [Suspect]
     Active Substance: LENALIDOMIDE
     Indication: Plasma cell leukaemia
  3. DEXAMETHASONE [Suspect]
     Active Substance: DEXAMETHASONE
     Indication: Plasma cell leukaemia
  4. BRENTUXIMAB [Concomitant]
     Active Substance: BRENTUXIMAB
     Indication: Hodgkin^s disease
     Dosage: 6 CYCLES
  5. BRENTUXIMAB [Concomitant]
     Active Substance: BRENTUXIMAB
     Indication: Chronic lymphocytic leukaemia
  6. BENDAMUSTINE [Concomitant]
     Active Substance: BENDAMUSTINE
     Indication: Hodgkin^s disease
     Dosage: 6 CYCLES
  7. BENDAMUSTINE [Concomitant]
     Active Substance: BENDAMUSTINE
     Indication: Chronic lymphocytic leukaemia
  8. IBRUTINIB [Concomitant]
     Active Substance: IBRUTINIB
     Indication: Hodgkin^s disease
     Dosage: 1 YEAR
  9. IBRUTINIB [Concomitant]
     Active Substance: IBRUTINIB
     Indication: Chronic lymphocytic leukaemia

REACTIONS (5)
  - Death [Fatal]
  - Disease progression [Unknown]
  - Plasma cell leukaemia [Unknown]
  - Drug ineffective [Unknown]
  - Contraindication to medical treatment [Unknown]
